FAERS Safety Report 5429525-7 (Version None)
Quarter: 2007Q3

REPORT INFORMATION
  Report Type: 
  Country: None (occurrence: None)
  Receive Date: 20070829
  Receipt Date: 20070820
  Transmission Date: 20080115
  Serious: Yes (Other)
  Sender: FDA-Public Use
  Company Number: US-JNJFOC-20070804436

PATIENT
  Age: 18 Year
  Sex: Female
  Weight: 86.18 kg

DRUGS (6)
  1. TOPAMAX [Suspect]
     Route: 048
  2. TOPAMAX [Suspect]
     Indication: DRUG THERAPY
     Route: 048
  3. PROZAC [Concomitant]
     Indication: DEPRESSION
     Route: 048
  4. PROZAC [Concomitant]
     Indication: OBSESSIVE-COMPULSIVE DISORDER
     Route: 048
  5. PROZAC [Concomitant]
     Indication: PANIC DISORDER
     Route: 048
  6. KLONOPIN [Concomitant]
     Indication: PANIC DISORDER
     Route: 048

REACTIONS (4)
  - DIZZINESS [None]
  - MENTAL IMPAIRMENT [None]
  - PARAESTHESIA [None]
  - PHOTOPSIA [None]
